FAERS Safety Report 25361540 (Version 1)
Quarter: 2025Q2

REPORT INFORMATION
  Report Type: Spontaneous
  Country: PK (occurrence: PK)
  Receive Date: 20250527
  Receipt Date: 20250527
  Transmission Date: 20250716
  Serious: Yes (Hospitalization, Other)
  Sender: LEGACY PHARMACEUTICAL PACKAGING
  Company Number: PK-LEGACY PHARMA INC. SEZC-LGP202505-000159

PATIENT
  Age: 27 Year
  Sex: Female

DRUGS (2)
  1. ATROPINE SULFATE\DIFENOXIN HYDROCHLORIDE [Suspect]
     Active Substance: ATROPINE SULFATE\DIFENOXIN HYDROCHLORIDE
     Indication: Chemical poisoning
     Dosage: 1 MILLILITER, QH, 9 DOSES
     Route: 042
  2. ATROPINE SULFATE\DIFENOXIN HYDROCHLORIDE [Suspect]
     Active Substance: ATROPINE SULFATE\DIFENOXIN HYDROCHLORIDE

REACTIONS (6)
  - Substance-induced psychotic disorder [Unknown]
  - Confusional state [Unknown]
  - Somnolence [Unknown]
  - Tachycardia [Unknown]
  - Exposure during pregnancy [Unknown]
  - Product use in unapproved indication [Unknown]
